FAERS Safety Report 9534329 (Version 1)
Quarter: 2013Q3

REPORT INFORMATION
  Report Type: Spontaneous
  Country: US (occurrence: US)
  Receive Date: 20130918
  Receipt Date: 20130918
  Transmission Date: 20140515
  Serious: No
  Sender: FDA-Public Use
  Company Number: US-PURDUE-USA-2011-0080299

PATIENT
  Sex: Male

DRUGS (4)
  1. BUTRANS [Suspect]
     Indication: PAIN
     Dosage: 20 MCG, Q1H, EVERY OTHER WEEK
     Route: 062
  2. BUTRANS [Suspect]
     Dosage: 10 MCG, Q1H
     Route: 062
     Dates: start: 201110
  3. FLEXERIL                           /00428402/ [Concomitant]
     Indication: PAIN
     Dosage: 10 MG, Q8H, EVERY OTHER WEEK
     Route: 048
  4. OXYCODONE HCL CR TABLETS (SIMILAR TO NDA 20-553) [Concomitant]
     Indication: PAIN
     Dosage: 5/325MG TABLET Q 6HRS, EVERY OTHER WEEK
     Route: 048

REACTIONS (3)
  - Inappropriate schedule of drug administration [Unknown]
  - Inadequate analgesia [Recovered/Resolved]
  - Product contamination [Unknown]
